FAERS Safety Report 17348792 (Version 1)
Quarter: 2020Q1

REPORT INFORMATION
  Report Type: Report from Study
  Country: US (occurrence: US)
  Receive Date: 20200129
  Receipt Date: 20200129
  Transmission Date: 20200409
  Serious: No
  Sender: FDA-Public Use
  Company Number: US-EXELIXIS-CABO-19024630

PATIENT
  Sex: Male

DRUGS (2)
  1. CABOMETYX [Suspect]
     Active Substance: CABOZANTINIB S-MALATE
     Dosage: 60 MG, QD (AM WITHOUT FOOD)
     Dates: start: 20191029
  2. CABOMETYX [Suspect]
     Active Substance: CABOZANTINIB S-MALATE
     Indication: RENAL CELL CARCINOMA
     Dosage: 40 MG
     Dates: start: 201909

REACTIONS (5)
  - Epistaxis [Unknown]
  - Platelet count decreased [Unknown]
  - Nausea [Recovered/Resolved]
  - Diarrhoea [Recovering/Resolving]
  - Blood pressure fluctuation [Unknown]
